FAERS Safety Report 12093454 (Version 1)
Quarter: 2016Q1

REPORT INFORMATION
  Report Type: Spontaneous
  Country: NO (occurrence: None)
  Receive Date: 20160217
  Receipt Date: 20160217
  Transmission Date: 20160526
  Serious: Yes (Other)
  Sender: FDA-Public Use
  Company Number: 2016-02822

PATIENT
  Age: 11 Month
  Sex: Female

DRUGS (1)
  1. PROPANOLOL (UNKNOWN)(PROPRANOLOL HYDROCHLORIDE) UNK, UNKUNK [Suspect]
     Active Substance: PROPRANOLOL HYDROCHLORIDE
     Indication: PRODUCT USED FOR UNKNOWN INDICATION

REACTIONS (2)
  - Hypoglycaemia [None]
  - Hypoglycaemic seizure [None]
